FAERS Safety Report 5919343-5 (Version None)
Quarter: 2008Q4

REPORT INFORMATION
  Report Type: 
  Country: None (occurrence: None)
  Receive Date: 20081015
  Receipt Date: 20081008
  Transmission Date: 20090506
  Serious: Yes (Hospitalization)
  Sender: FDA-Public Use
  Company Number: A0749099A

PATIENT
  Age: 61 Year
  Sex: Female

DRUGS (1)
  1. LAMICTAL [Suspect]
     Indication: EPILEPSY
     Route: 065
     Dates: start: 20080821

REACTIONS (6)
  - CONVULSION [None]
  - FATIGUE [None]
  - MALAISE [None]
  - PYREXIA [None]
  - RASH [None]
  - TOOTH FRACTURE [None]
